FAERS Safety Report 11815072 (Version 1)
Quarter: 2015Q4

REPORT INFORMATION
  Report Type: Spontaneous
  Country: US (occurrence: US)
  Receive Date: 20151209
  Receipt Date: 20151209
  Transmission Date: 20160305
  Serious: No
  Sender: FDA-Public Use
  Company Number: US-SA-2015SA162800

PATIENT
  Age: 63 Year
  Sex: Male

DRUGS (2)
  1. SOLOSTAR [Concomitant]
     Active Substance: DEVICE
     Dates: start: 201508
  2. TOUJEO [Suspect]
     Active Substance: INSULIN GLARGINE
     Dosage: DOSE:45 UNIT(S)
     Route: 058
     Dates: start: 201508

REACTIONS (1)
  - Rash [Unknown]
